FAERS Safety Report 13001770 (Version 1)
Quarter: 2016Q4

REPORT INFORMATION
  Report Type: Spontaneous
  Country: US (occurrence: US)
  Receive Date: 20161206
  Receipt Date: 20161206
  Transmission Date: 20170207
  Serious: Yes (Life-Threatening, Other)
  Sender: FDA-Public Use
  Company Number: US-CLINIGEN GROUP PLC/ CLINIGEN HEALTHCARE LTD-E2B_00004238

PATIENT
  Sex: Female

DRUGS (2)
  1. FOSCAVIR [Suspect]
     Active Substance: FOSCARNET SODIUM
     Indication: CYTOMEGALOVIRUS INFECTION
     Dosage: DOSE: 2  TOTAL DAILY DOSE: 6
     Route: 042
     Dates: start: 19940725
  2. FOSCAVIR [Suspect]
     Active Substance: FOSCARNET SODIUM
     Dosage: DOSE: 4  TOTAL DAILY DOSE: 12
     Route: 042
     Dates: start: 19940720, end: 19940724

REACTIONS (2)
  - Renal impairment [Unknown]
  - Pulmonary haemorrhage [Unknown]

NARRATIVE: CASE EVENT DATE: 19940725
